FAERS Safety Report 7086711-0 (Version None)
Quarter: 2010Q4

REPORT INFORMATION
  Report Type: 
  Country: None (occurrence: None)
  Receive Date: 20101105
  Receipt Date: 20101102
  Transmission Date: 20110411
  Serious: Yes (Death)
  Sender: FDA-Public Use
  Company Number: DE-ROCHE-699539

PATIENT
  Sex: Female
  Weight: 53 kg

DRUGS (8)
  1. BEVACIZUMAB [Suspect]
     Indication: BREAST CANCER
     Dosage: LAST DOSE PRIOR TO SAE:6 APR 10.ROUTE,DOSE PER PROTOCOL.
     Route: 042
     Dates: start: 20100315
  2. CAPECITABINE [Suspect]
     Indication: BREAST CANCER
     Dosage: LAST DOSE PRIOR TO SAE:19APR 10.DOSE,FREQ PER PROTOCOL.
     Route: 048
     Dates: start: 20100315
  3. TRAMOL [Concomitant]
  4. XIPAMID [Concomitant]
     Dosage: DRUG NAME : XIPAMID 20
  5. CAPVAL [Concomitant]
     Dates: start: 20100315
  6. ASPIRIN [Concomitant]
     Dates: start: 20100305
  7. NOVODIGAL [Concomitant]
  8. CONCOR [Concomitant]

REACTIONS (1)
  - PULMONARY EMBOLISM [None]
